FAERS Safety Report 20307411 (Version 2)
Quarter: 2022Q2

REPORT INFORMATION
  Report Type: Spontaneous
  Country: US (occurrence: None)
  Receive Date: 20220107
  Receipt Date: 20220415
  Transmission Date: 20220720
  Serious: Yes (Other)
  Sender: FDA-Public Use
  Company Number: US-ROCHE-2873301

PATIENT
  Sex: Female

DRUGS (6)
  1. CAPECITABINE [Suspect]
     Active Substance: CAPECITABINE
     Indication: Product used for unknown indication
     Route: 048
  2. TUKYSA [Suspect]
     Active Substance: TUCATINIB
     Indication: Breast cancer female
     Route: 065
  3. TUKYSA [Suspect]
     Active Substance: TUCATINIB
     Route: 065
  4. TUKYSA [Suspect]
     Active Substance: TUCATINIB
     Route: 065
  5. TUKYSA [Suspect]
     Active Substance: TUCATINIB
     Route: 065
  6. METHADONE [Concomitant]
     Active Substance: METHADONE HYDROCHLORIDE

REACTIONS (7)
  - Insomnia [Unknown]
  - Fatigue [Unknown]
  - Dysphagia [Unknown]
  - Dizziness [Unknown]
  - Anaemia [Unknown]
  - Muscle spasms [Unknown]
  - Cerebral atrophy [Unknown]
